FAERS Safety Report 9447988 (Version 1)
Quarter: 2013Q3

REPORT INFORMATION
  Report Type: Report from Study
  Country: US (occurrence: US)
  Receive Date: 20130808
  Receipt Date: 20130808
  Transmission Date: 20140515
  Serious: Yes (Hospitalization, Other)
  Sender: FDA-Public Use
  Company Number: PHEH2013US013464

PATIENT
  Age: 58 Year
  Sex: Male

DRUGS (3)
  1. GLEEVEC [Suspect]
     Indication: CHRONIC MYELOID LEUKAEMIA
     Dosage: 800 MG, DAILY
     Route: 048
     Dates: start: 2008
  2. GLEEVEC [Suspect]
     Dosage: 800 MG, DAILY
     Route: 048
  3. GLEEVEC [Suspect]
     Dosage: 400 MG, DAILY
     Route: 048

REACTIONS (5)
  - Large intestine perforation [Unknown]
  - Oedematous kidney [Recovered/Resolved with Sequelae]
  - Abscess intestinal [Recovered/Resolved]
  - Nausea [Unknown]
  - Vomiting [Unknown]
